FAERS Safety Report 17049140 (Version 3)
Quarter: 2019Q4

REPORT INFORMATION
  Report Type: Other
  Country: CA (occurrence: CA)
  Receive Date: 20191119
  Receipt Date: 20191227
  Transmission Date: 20200122
  Serious: Yes (Death, Hospitalization, Other)
  Sender: FDA-Public Use
  Company Number: CA-INTERCEPT-PM2019001961

PATIENT
  Sex: Female

DRUGS (5)
  1. URSO [Concomitant]
     Active Substance: URSODIOL
     Indication: PRODUCT USED FOR UNKNOWN INDICATION
     Dosage: 1250 MG, QD
     Route: 048
     Dates: start: 201809
  2. VITAMIN D3 [Concomitant]
     Active Substance: CHOLECALCIFEROL
     Indication: PRODUCT USED FOR UNKNOWN INDICATION
     Dosage: UNK, BID
  3. OCALIVA [Suspect]
     Active Substance: OBETICHOLIC ACID
     Indication: PRIMARY BILIARY CHOLANGITIS
     Dosage: 5 MG, QW
     Route: 048
     Dates: start: 20190401
  4. SPIRONOLACTONE. [Concomitant]
     Active Substance: SPIRONOLACTONE
     Indication: PRODUCT USED FOR UNKNOWN INDICATION
  5. FLUOXETINE [Concomitant]
     Active Substance: FLUOXETINE HYDROCHLORIDE
     Indication: PRURITUS
     Dosage: 10 MG, UNK

REACTIONS (8)
  - Abdominal cavity drainage [Unknown]
  - Perforated ulcer [Unknown]
  - Nephrolithiasis [Unknown]
  - Blood bilirubin increased [Unknown]
  - Hepatic failure [Fatal]
  - Bronchitis [Unknown]
  - Blood alkaline phosphatase increased [Unknown]
  - Nervousness [Unknown]

NARRATIVE: CASE EVENT DATE: 2019
